FAERS Safety Report 10536286 (Version 1)
Quarter: 2014Q4

REPORT INFORMATION
  Report Type: Spontaneous
  Country: US (occurrence: US)
  Receive Date: 20141022
  Receipt Date: 20141022
  Transmission Date: 20150529
  Serious: No
  Sender: FDA-Public Use
  Company Number: US-RECKITT BENCKISER PHARMACEUTICAL, INC-RB-65315-2014

PATIENT

DRUGS (2)
  1. SUBOXONE [Suspect]
     Active Substance: BUPRENORPHINE HYDROCHLORIDE\NALOXONE HYDROCHLORIDE
     Indication: DRUG DEPENDENCE
     Dosage: SUBOXONE FILM; CUTTING
     Route: 060
     Dates: start: 2012, end: 201312
  2. SUBOXONE [Suspect]
     Active Substance: BUPRENORPHINE HYDROCHLORIDE\NALOXONE HYDROCHLORIDE
     Dosage: SUBOXONE FILM; RESTARTED AND CUTTING AGAIN
     Route: 060
     Dates: start: 201312

REACTIONS (8)
  - Wrong technique in drug usage process [Not Recovered/Not Resolved]
  - Nasopharyngitis [Not Recovered/Not Resolved]
  - Off label use [Recovered/Resolved]
  - Laceration [Recovering/Resolving]
  - Mood altered [Recovered/Resolved]
  - Rhinorrhoea [Not Recovered/Not Resolved]
  - Lacrimation increased [Recovered/Resolved]
  - Drug withdrawal syndrome [Recovered/Resolved]

NARRATIVE: CASE EVENT DATE: 2012
